FAERS Safety Report 7727608-X (Version None)
Quarter: 2011Q3

REPORT INFORMATION
  Report Type: 
  Country: None (occurrence: None)
  Receive Date: 20110902
  Receipt Date: 20110818
  Transmission Date: 20111222
  Serious: Yes (Hospitalization)
  Sender: FDA-Public Use
  Company Number: PHHO2011KR14004

PATIENT
  Sex: Male
  Weight: 65 kg

DRUGS (1)
  1. MYCOPHENOLIC ACID [Suspect]
     Indication: RENAL TRANSPLANT
     Dosage: 1080 MG, UNK
     Route: 048
     Dates: start: 20100813

REACTIONS (1)
  - COMPLICATIONS OF TRANSPLANTED KIDNEY [None]
